FAERS Safety Report 18606366 (Version 1)
Quarter: 2020Q4

REPORT INFORMATION
  Report Type: Report from Study
  Country: IT (occurrence: IT)
  Receive Date: 20201211
  Receipt Date: 20201211
  Transmission Date: 20210114
  Serious: Yes (Other)
  Sender: FDA-Public Use
  Company Number: IT-ASTRAZENECA-2020SF42602

PATIENT
  Age: 21492 Day
  Sex: Female

DRUGS (1)
  1. BENRALIZUMAB. [Suspect]
     Active Substance: BENRALIZUMAB
     Indication: ASTHMA
     Dosage: 30.0MG UNKNOWN
     Route: 058
     Dates: start: 20200224

REACTIONS (4)
  - Contusion [Unknown]
  - Pain [Not Recovered/Not Resolved]
  - Haematoma [Recovering/Resolving]
  - Acquired haemophilia [Unknown]

NARRATIVE: CASE EVENT DATE: 20201012
